FAERS Safety Report 9690208 (Version 1)
Quarter: 2013Q4

REPORT INFORMATION
  Report Type: Spontaneous
  Country: IN (occurrence: IN)
  Receive Date: 20131115
  Receipt Date: 20131115
  Transmission Date: 20140711
  Serious: Yes (Hospitalization, Disabling)
  Sender: FDA-Public Use
  Company Number: IN-ASTRAZENECA-2013SE82567

PATIENT
  Sex: Male

DRUGS (4)
  1. TICAGRELOR [Suspect]
     Route: 048
  2. COLSPRIN [Concomitant]
  3. STATIN [Concomitant]
  4. BETA BLOCKER [Concomitant]

REACTIONS (2)
  - Orthopnoea [Unknown]
  - Dyspnoea [Unknown]
